FAERS Safety Report 16440106 (Version 2)
Quarter: 2019Q3

REPORT INFORMATION
  Report Type: Other
  Country: GB (occurrence: GB)
  Receive Date: 20190617
  Receipt Date: 20190710
  Transmission Date: 20191004
  Serious: Yes (Hospitalization, Other)
  Sender: FDA-Public Use
  Company Number: GB-ASPEN-GLO2019GB005718

PATIENT
  Age: 53 Year
  Sex: Female

DRUGS (14)
  1. RAMIPRIL. [Suspect]
     Active Substance: RAMIPRIL
     Indication: AMYLOIDOSIS
     Dosage: 2.5 MG, QD
     Route: 065
     Dates: start: 201409
  2. BISOPROLOL [Concomitant]
     Active Substance: BISOPROLOL
     Indication: AMYLOIDOSIS
     Dosage: 2.5 MG, QD
     Route: 065
     Dates: start: 201406
  3. SPIRONOLACTONE. [Concomitant]
     Active Substance: SPIRONOLACTONE
     Indication: AMYLOIDOSIS
     Route: 065
  4. DEXAMETHASONE. [Suspect]
     Active Substance: DEXAMETHASONE
     Indication: AMYLOIDOSIS
     Dosage: CYCLICAL
     Route: 065
     Dates: start: 201505
  5. CYCLOPHOSPHAMIDE. [Suspect]
     Active Substance: CYCLOPHOSPHAMIDE
     Indication: AMYLOIDOSIS
     Dosage: VTD; 4 CYCLES
     Route: 065
  6. CYCLOPHOSPHAMIDE. [Suspect]
     Active Substance: CYCLOPHOSPHAMIDE
     Dosage: 10 ? 50 MG; 3 CYCLES
     Route: 065
     Dates: start: 201410
  7. LENALIDOMIDE [Suspect]
     Active Substance: LENALIDOMIDE
     Indication: AMYLOIDOSIS
     Dosage: UNK
     Route: 065
  8. RAMIPRIL. [Suspect]
     Active Substance: RAMIPRIL
     Indication: HYPERTENSION
  9. DEXAMETHASONE. [Suspect]
     Active Substance: DEXAMETHASONE
     Dosage: 2-WEEK CHEMOTHERAPEUTIC REGIME COMPRISED OF DEXAMETHASONE (10 ? 2 MG DAYS 1, 4, 8, AND 11; 3 CYCLES
     Route: 065
     Dates: start: 201410
  10. VELCADE [Suspect]
     Active Substance: BORTEZOMIB
     Indication: AMYLOIDOSIS
     Dosage: VTD; 4 CYCLES
     Route: 065
  11. SPIRONOLACTONE. [Concomitant]
     Active Substance: SPIRONOLACTONE
     Indication: HYPERTENSION
  12. VELCADE [Suspect]
     Active Substance: BORTEZOMIB
     Dosage: 1 MG/M2 DAYS 1, 4, 8, AND 11; (3 CYCLES)
     Route: 065
     Dates: start: 201410
  13. DEXAMETHASONE. [Suspect]
     Active Substance: DEXAMETHASONE
     Dosage: VTD, (4 CYCLES)
     Route: 065
  14. THALIDOMIDE [Suspect]
     Active Substance: THALIDOMIDE
     Indication: AMYLOIDOSIS
     Dosage: 4 CYCLES
     Route: 065

REACTIONS (4)
  - Renal impairment [Recovered/Resolved]
  - Dehydration [Recovered/Resolved]
  - Diarrhoea [Recovered/Resolved]
  - Vomiting [Recovered/Resolved]

NARRATIVE: CASE EVENT DATE: 2016
